FAERS Safety Report 5289010-2 (Version None)
Quarter: 2007Q2

REPORT INFORMATION
  Report Type: 
  Country: None (occurrence: None)
  Receive Date: 20070405
  Receipt Date: 20070324
  Transmission Date: 20071010
  Serious: Yes (Other)
  Sender: FDA-Public Use
  Company Number: IN-PFIZER INC-2007023785

PATIENT
  Age: 60 Year
  Sex: Female

DRUGS (1)
  1. DALACIN [Suspect]
     Indication: OSTEOMYELITIS
     Dosage: FREQ:1 DOSE
     Route: 042

REACTIONS (4)
  - HYPOAESTHESIA [None]
  - MUSCLE TWITCHING [None]
  - PARAESTHESIA [None]
  - PYREXIA [None]
